FAERS Safety Report 5550205-1 (Version None)
Quarter: 2007Q4

REPORT INFORMATION
  Report Type: 
  Country: None (occurrence: None)
  Receive Date: 20071212
  Receipt Date: 20070425
  Transmission Date: 20080405
  Serious: No
  Sender: FDA-Public Use
  Company Number: US-AMGEN-KDL216655

PATIENT
  Sex: Female
  Weight: 62.7 kg

DRUGS (7)
  1. ENBREL [Suspect]
     Indication: PSORIATIC ARTHROPATHY
     Route: 058
     Dates: start: 20061211, end: 20070501
  2. ENBREL [Suspect]
     Indication: RHEUMATOID ARTHRITIS
  3. FOLIC ACID [Concomitant]
  4. LISINOPRIL [Concomitant]
  5. METHOTREXATE [Concomitant]
  6. ZELNORM [Concomitant]
  7. MIRALAX [Concomitant]

REACTIONS (5)
  - INFLUENZA LIKE ILLNESS [None]
  - INJECTION SITE PRURITUS [None]
  - INJECTION SITE SWELLING [None]
  - INJECTION SITE WARMTH [None]
  - ORAL HERPES [None]
